FAERS Safety Report 16375995 (Version 2)
Quarter: 2019Q2

REPORT INFORMATION
  Report Type: Spontaneous
  Country: BE (occurrence: BE)
  Receive Date: 20190531
  Receipt Date: 20190613
  Transmission Date: 20190711
  Serious: Yes (Disabling, Other)
  Sender: FDA-Public Use
  Company Number: BE-ACCORD-130348

PATIENT
  Age: 57 Year
  Sex: Male
  Weight: 100 kg

DRUGS (9)
  1. CISPLATIN. [Suspect]
     Active Substance: CISPLATIN
     Indication: NEOPLASM
     Route: 042
     Dates: start: 20181112, end: 20181203
  2. ASAFLOW [Concomitant]
     Active Substance: ASPIRIN
     Route: 048
  3. AKYNZEO [Concomitant]
     Active Substance: NETUPITANT\PALONOSETRON HYDROCHLORIDE
     Indication: PROPHYLAXIS OF NAUSEA AND VOMITING
     Route: 048
     Dates: start: 20181112, end: 20181203
  4. LIPITOR [Concomitant]
     Active Substance: ATORVASTATIN CALCIUM
     Indication: HYPERCHOLESTEROLAEMIA
     Route: 048
  5. DEXAMETHASON ROTEXMEDICA [Concomitant]
     Indication: CHEMOTHERAPY
     Dosage: 8MG PER DAY FOR 3 DAYS AFTER CHEMO
     Route: 042
     Dates: start: 20181112, end: 20181203
  6. PANTOMED [Concomitant]
     Route: 048
     Dates: start: 20181204
  7. TRAZODONE [Concomitant]
     Active Substance: TRAZODONE HYDROCHLORIDE
     Indication: INSOMNIA
     Route: 048
  8. BISOPROLOL EG [Concomitant]
     Active Substance: BISOPROLOL
     Route: 048
  9. TRADONAL ODIS [Concomitant]
     Indication: PAIN
     Dosage: IF NECESSARY
     Route: 048
     Dates: start: 20181204

REACTIONS (2)
  - Hypoacusis [Not Recovered/Not Resolved]
  - Tinnitus [Not Recovered/Not Resolved]

NARRATIVE: CASE EVENT DATE: 20181121
